FAERS Safety Report 13495073 (Version 1)
Quarter: 2017Q2

REPORT INFORMATION
  Report Type: Spontaneous
  Country: MX (occurrence: MX)
  Receive Date: 20170428
  Receipt Date: 20170428
  Transmission Date: 20170830
  Serious: Yes (Hospitalization, Other)
  Sender: FDA-Public Use
  Company Number: MX-APOTEX-2017AP011309

PATIENT
  Age: 11 Year
  Sex: Male

DRUGS (1)
  1. HALOPERIDOL. [Suspect]
     Active Substance: HALOPERIDOL
     Indication: PRODUCT USED FOR UNKNOWN INDICATION
     Dosage: UNK
     Route: 065

REACTIONS (11)
  - Bradyphrenia [Recovering/Resolving]
  - Hypertonia [Recovering/Resolving]
  - Resting tremor [Recovering/Resolving]
  - Hyperreflexia [Recovering/Resolving]
  - Somnolence [Recovering/Resolving]
  - Muscle contracture [Recovering/Resolving]
  - Arrhythmia [Recovering/Resolving]
  - Speech disorder [Recovering/Resolving]
  - Toxicity to various agents [Recovering/Resolving]
  - Apraxia [Recovering/Resolving]
  - Walking aid user [Recovering/Resolving]
